FAERS Safety Report 20559709 (Version 1)
Quarter: 2022Q1

REPORT INFORMATION
  Report Type: Spontaneous
  Country: US (occurrence: None)
  Receive Date: 20220304
  Receipt Date: 20220304
  Transmission Date: 20220424
  Serious: No
  Sender: FDA-Public Use
  Company Number: None

PATIENT
  Age: 49 Year
  Sex: Female

DRUGS (1)
  1. CAPECITABINE [Suspect]
     Active Substance: CAPECITABINE
     Indication: Colorectal cancer
     Dosage: 1500 MG  BID IN THE MORING BID ORAL?
     Route: 048
     Dates: start: 202112

REACTIONS (10)
  - Blood disorder [None]
  - Palmar-plantar erythrodysaesthesia syndrome [None]
  - Fatigue [None]
  - Sensory disturbance [None]
  - Sinus disorder [None]
  - Nasal dryness [None]
  - Facial pain [None]
  - Dizziness [None]
  - White blood cell count abnormal [None]
  - Therapy interrupted [None]

NARRATIVE: CASE EVENT DATE: 20220129
